APPROVED DRUG PRODUCT: ALFUZOSIN HYDROCHLORIDE
Active Ingredient: ALFUZOSIN HYDROCHLORIDE
Strength: 10MG
Dosage Form/Route: TABLET, EXTENDED RELEASE;ORAL
Application: A090221 | Product #001
Applicant: WOCKHARDT BIO AG
Approved: Aug 10, 2012 | RLD: No | RS: No | Type: DISCN